FAERS Safety Report 10066350 (Version 2)
Quarter: 2014Q2

REPORT INFORMATION
  Report Type: Spontaneous
  Country: US (occurrence: US)
  Receive Date: 20140408
  Receipt Date: 20140408
  Transmission Date: 20141212
  Serious: Yes (Other)
  Sender: FDA-Public Use
  Company Number: US-ACTELION-A-US2014-95730

PATIENT
  Age: 54 Year
  Sex: Female

DRUGS (2)
  1. TRACLEER [Suspect]
     Indication: PULMONARY ARTERIAL HYPERTENSION
     Dosage: UNK
     Route: 048
     Dates: end: 201403
  2. LASIX [Concomitant]
     Dosage: 20 MG, UNK

REACTIONS (4)
  - Renal disorder [Unknown]
  - Blood creatinine increased [Unknown]
  - Liver function test abnormal [Unknown]
  - Swelling [Unknown]
